FAERS Safety Report 9559193 (Version 1)
Quarter: 2013Q3

REPORT INFORMATION
  Report Type: Spontaneous
  Country: US (occurrence: None)
  Receive Date: 20130924
  Receipt Date: 20130924
  Transmission Date: 20140515
  Serious: Yes (Hospitalization)
  Sender: FDA-Public Use
  Company Number: AUR-APL-2013-07808

PATIENT
  Age: 76 Year
  Sex: Female

DRUGS (5)
  1. MIRTAZAPINE [Suspect]
     Indication: DEPRESSION
     Dosage: (15 MG), ORAL
     Route: 048
  2. OLANZAPINE [Suspect]
     Indication: DEPRESSION
     Dosage: (2.5 MG), ORAL
     Route: 048
  3. TAMOXIFEN [Suspect]
     Indication: BREAST CANCER
     Dosage: (20 MG, 1 D), ORAL
     Route: 048
     Dates: start: 2007
  4. LEVOTHYROXINE (LEVOTHYROXINE) [Concomitant]
  5. SERTRALINE (SERTRALINE) [Concomitant]

REACTIONS (4)
  - Major depression [None]
  - Catatonia [None]
  - Drug interaction [None]
  - Psychotic disorder [None]
